FAERS Safety Report 8106973-8 (Version None)
Quarter: 2012Q1

REPORT INFORMATION
  Report Type: 
  Country: None (occurrence: None)
  Receive Date: 20120202
  Receipt Date: 20120124
  Transmission Date: 20120608
  Serious: Yes (Death, Life-Threatening)
  Sender: FDA-Public Use
  Company Number: JP-GENZYME-THYM-1002631

PATIENT
  Sex: Male
  Weight: 64 kg

DRUGS (15)
  1. ALLOPURINOL [Concomitant]
     Indication: HYPERURICAEMIA
     Dosage: UNK
     Route: 065
     Dates: start: 20110314, end: 20110326
  2. GRANISETRON HYDROCHLORIDE [Concomitant]
     Indication: PROPHYLAXIS OF NAUSEA AND VOMITING
     Dosage: UNK
     Route: 065
     Dates: start: 20110314, end: 20110315
  3. CYCLOSPORINE [Concomitant]
     Indication: PROPHYLAXIS AGAINST GRAFT VERSUS HOST DISEASE
     Dosage: UNK
     Route: 065
     Dates: start: 20110317, end: 20110414
  4. ACYCLOVIR [Concomitant]
     Indication: INFECTION PROPHYLAXIS
     Dosage: UNK
     Route: 065
     Dates: start: 20110314, end: 20110414
  5. THYMOGLOBULIN [Suspect]
     Indication: BONE MARROW CONDITIONING REGIMEN
     Dosage: 125 MG, QD
     Route: 042
     Dates: start: 20110314, end: 20110315
  6. BUSULFAN [Concomitant]
     Indication: BONE MARROW CONDITIONING REGIMEN
     Dosage: 60 MG, QD
     Route: 042
     Dates: start: 20110311, end: 20110314
  7. AMLODIPINE BESYLATE [Concomitant]
     Indication: HYPERTENSION
     Dosage: UNK
     Route: 065
     Dates: start: 20110314, end: 20110326
  8. VALSARTAN [Concomitant]
     Indication: HYPERTENSION
     Dosage: UNK
     Route: 065
     Dates: start: 20110314, end: 20110326
  9. HYDROCORTISONE SODIUM PHOSPHATE [Concomitant]
     Indication: ALLERGY PROPHYLAXIS
     Dosage: UNK
     Route: 065
     Dates: start: 20110318, end: 20110318
  10. METHOTREXATE [Concomitant]
     Indication: PROPHYLAXIS AGAINST GRAFT VERSUS HOST DISEASE
     Dosage: UNK
     Route: 065
     Dates: start: 20110318, end: 20110329
  11. VORICONAZOLE [Concomitant]
     Indication: BRONCHOPULMONARY ASPERGILLOSIS
     Dosage: UNK
     Route: 065
     Dates: start: 20110314, end: 20110414
  12. ATENOLOL [Concomitant]
     Indication: HYPERTENSION
     Dosage: UNK
     Route: 065
     Dates: start: 20110314, end: 20110326
  13. METHYLPREDNISOLONE SODIUM SUCCINATE [Concomitant]
     Indication: PREMEDICATION
     Dosage: 40 MG, QD
     Route: 042
     Dates: start: 20110314, end: 20110315
  14. DEXCHLORPHENIRAMINE MALEATE [Concomitant]
     Indication: ALLERGY PROPHYLAXIS
     Dosage: UNK
     Route: 065
     Dates: start: 20110315, end: 20110414
  15. MELPHALAN HYDROCHLORIDE [Concomitant]
     Indication: BONE MARROW CONDITIONING REGIMEN
     Dosage: 50 MG, QD
     Route: 042
     Dates: start: 20110315, end: 20110315

REACTIONS (11)
  - HYPOMAGNESAEMIA [None]
  - SEPSIS [None]
  - DERMATITIS BULLOUS [None]
  - RENAL FAILURE [None]
  - CARDIAC FAILURE [None]
  - ATRIAL FIBRILLATION [None]
  - HYPOALBUMINAEMIA [None]
  - MUCOUS MEMBRANE DISORDER [None]
  - FEBRILE NEUTROPENIA [None]
  - INSOMNIA [None]
  - HYPERGLYCAEMIA [None]
